FAERS Safety Report 14148515 (Version 1)
Quarter: 2017Q4

REPORT INFORMATION
  Report Type: Spontaneous
  Country: US (occurrence: US)
  Receive Date: 20171101
  Receipt Date: 20171101
  Transmission Date: 20180321
  Serious: Yes (Life-Threatening, Other)
  Sender: FDA-Public Use
  Company Number: US-TORRENT-00003517

PATIENT
  Age: 13 Year
  Sex: Female

DRUGS (5)
  1. BUPROPION HYDROCHLORIDE. [Suspect]
     Active Substance: BUPROPION HYDROCHLORIDE
  2. PARACETAMOL [Suspect]
     Active Substance: ACETAMINOPHEN
  3. NAPROXEN. [Suspect]
     Active Substance: NAPROXEN
  4. DIPHENHYDRAMINE. [Suspect]
     Active Substance: DIPHENHYDRAMINE
  5. CITALOPRAM [Suspect]
     Active Substance: CITALOPRAM HYDROBROMIDE

REACTIONS (8)
  - Hypohidrosis [Recovered/Resolved]
  - Toxicity to various agents [Unknown]
  - Hallucination [Recovered/Resolved]
  - Hyperthermia [Recovered/Resolved]
  - Agitation [Recovering/Resolving]
  - Overdose [Unknown]
  - Myoclonus [Unknown]
  - Muscle rigidity [Unknown]
